FAERS Safety Report 16403673 (Version 1)
Quarter: 2019Q2

REPORT INFORMATION
  Report Type: Spontaneous
  Country: TN (occurrence: TN)
  Receive Date: 20190607
  Receipt Date: 20190607
  Transmission Date: 20190711
  Serious: Yes (Death, Life-Threatening, Hospitalization, Other)
  Sender: FDA-Public Use
  Company Number: TN-AXELLIA-002508

PATIENT
  Age: 39 Year
  Sex: Male

DRUGS (6)
  1. AMPHOTERICIN B/AMPHOTERICIN B/LIPOSOME [Suspect]
     Active Substance: AMPHOTERICIN B
     Indication: PYREXIA
  2. IDARUBICIN [Suspect]
     Active Substance: IDARUBICIN
     Indication: ACUTE MYELOID LEUKAEMIA
     Dosage: PER DAY ON DAYS 1-3
  3. CYTARABINE/CYTARABINE HYDROCHLORIDE/CYTARABINE OCFOSFATE [Suspect]
     Active Substance: CYTARABINE
     Indication: ACUTE MYELOID LEUKAEMIA
     Dosage: PER DAY ON DAYS 1-7
  4. PIPERACILLIN SODIUM/TAZOBACTAM SODIUM [Suspect]
     Active Substance: PIPERACILLIN SODIUM\TAZOBACTAM SODIUM
     Indication: PYREXIA
  5. COLISTIN [Suspect]
     Active Substance: COLISTIN
     Indication: PYREXIA
  6. IMIPENEM [Suspect]
     Active Substance: IMIPENEM
     Indication: PYREXIA

REACTIONS (4)
  - Respiratory failure [Unknown]
  - Septic shock [Fatal]
  - Diarrhoea [Unknown]
  - Geotrichum infection [Unknown]
